FAERS Safety Report 7743284-4 (Version None)
Quarter: 2011Q3

REPORT INFORMATION
  Report Type: 
  Country: None (occurrence: None)
  Receive Date: 20110825
  Receipt Date: 20110812
  Transmission Date: 20111222
  Serious: Yes (Hospitalization, Other)
  Sender: FDA-Public Use
  Company Number: 2009-200082-NL

PATIENT
  Sex: Female
  Weight: 71.6683 kg

DRUGS (9)
  1. PRENATAL VITAM;INS [Concomitant]
  2. ZOLOFT [Concomitant]
  3. LOTRIMIN [Concomitant]
  4. NUVARING [Suspect]
     Indication: PRODUCT USED FOR UNKNOWN INDICATION
     Dosage: 1 DF
     Dates: start: 20020101, end: 20060101
  5. NUVARING [Suspect]
     Indication: PRODUCT USED FOR UNKNOWN INDICATION
     Dosage: 1 DF
     Dates: start: 20060101
  6. ALBUTEROL [Concomitant]
  7. FLAGYL [Concomitant]
  8. BENADRYL [Concomitant]
  9. FLEXERIL [Concomitant]

REACTIONS (30)
  - PARAESTHESIA [None]
  - DEEP VEIN THROMBOSIS [None]
  - PRE-ECLAMPSIA [None]
  - CAESAREAN SECTION [None]
  - CHEST PAIN [None]
  - ANAEMIA [None]
  - MATERNAL EXPOSURE DURING PREGNANCY [None]
  - PREGNANCY WITH IMPLANT CONTRACEPTIVE [None]
  - OVARIAN CYST [None]
  - CERVICAL DYSPLASIA [None]
  - HYPERTENSION [None]
  - ASTHMA [None]
  - CHEST DISCOMFORT [None]
  - CELLULITIS [None]
  - GESTATIONAL HYPERTENSION [None]
  - THROMBOSIS [None]
  - DYSPNOEA [None]
  - INSOMNIA [None]
  - PAPILLOMA VIRAL INFECTION [None]
  - LATEX ALLERGY [None]
  - DEHYDRATION [None]
  - ABSCESS [None]
  - MATERNAL EXPOSURE BEFORE PREGNANCY [None]
  - ABORTION SPONTANEOUS [None]
  - DRUG HYPERSENSITIVITY [None]
  - FUNGAL INFECTION [None]
  - URINARY TRACT INFECTION [None]
  - MIGRAINE [None]
  - GLYCOSURIA [None]
  - VAGINITIS BACTERIAL [None]
